FAERS Safety Report 8355980-9 (Version None)
Quarter: 2012Q2

REPORT INFORMATION
  Report Type: 
  Country: None (occurrence: None)
  Receive Date: 20120514
  Receipt Date: 20120502
  Transmission Date: 20120825
  Serious: Yes (Other)
  Sender: FDA-Public Use
  Company Number: BR-JNJFOC-20120311321

PATIENT
  Sex: Female
  Weight: 68 kg

DRUGS (4)
  1. POLARAMINE [Concomitant]
     Indication: PRODUCT USED FOR UNKNOWN INDICATION
     Route: 065
  2. REMICADE [Suspect]
     Indication: JUVENILE ARTHRITIS
     Route: 042
     Dates: start: 20120321
  3. PREDNISONE TAB [Concomitant]
     Indication: PRODUCT USED FOR UNKNOWN INDICATION
     Route: 065
  4. REMICADE [Suspect]
     Route: 042
     Dates: start: 20090101

REACTIONS (6)
  - INFUSION RELATED REACTION [None]
  - HYPOTENSION [None]
  - PRURITUS [None]
  - THROAT IRRITATION [None]
  - RESPIRATORY DISORDER [None]
  - PARAESTHESIA [None]
